FAERS Safety Report 24731621 (Version 1)
Quarter: 2024Q4

REPORT INFORMATION
  Report Type: Report from Study
  Country: CA (occurrence: CA)
  Receive Date: 20241213
  Receipt Date: 20241213
  Transmission Date: 20250114
  Serious: Yes (Other)
  Sender: BAYER HEALTHCARE PHARMACEUTICALS INC.
  Company Number: CA-BAYER-2024A171445

PATIENT
  Sex: Female

DRUGS (1)
  1. ADEMPAS [Suspect]
     Active Substance: RIOCIGUAT
     Indication: Pulmonary hypertension
     Dosage: 1 MG, TID
     Dates: start: 20240826

REACTIONS (15)
  - Chest injury [None]
  - Chest pain [None]
  - Palpitations [None]
  - Heart rate increased [None]
  - Head discomfort [Not Recovered/Not Resolved]
  - Cough [Not Recovered/Not Resolved]
  - Ocular discomfort [None]
  - Breast swelling [None]
  - Photophobia [None]
  - Hypotension [Unknown]
  - Headache [None]
  - Fatigue [None]
  - Nausea [None]
  - Dysphagia [None]
  - Vomiting [None]
